FAERS Safety Report 22035245 (Version 1)
Quarter: 2023Q1

REPORT INFORMATION
  Report Type: Other
  Country: None (occurrence: US)
  Receive Date: 20230224
  Receipt Date: 20230224
  Transmission Date: 20230418
  Serious: Yes (Death)
  Sender: FDA-Public Use
  Company Number: US-SIGA Technologies, Inc.-2138427

PATIENT
  Age: 38 Year
  Sex: Male

DRUGS (6)
  1. TECOVIRIMAT [Suspect]
     Active Substance: TECOVIRIMAT
  2. SALINE [Concomitant]
     Active Substance: SODIUM CHLORIDE
     Route: 042
  3. PIPERACILLIN AND TAZOBACTAM [Concomitant]
     Active Substance: PIPERACILLIN SODIUM\TAZOBACTAM SODIUM
     Route: 042
  4. trimethoprim/dulfamethoxazole [Concomitant]
     Route: 048
  5. FLUCONAZOLE [Concomitant]
     Active Substance: FLUCONAZOLE
     Route: 042
  6. BICTEGRAVIR\EMTRICITABINE\TENOFOVIR ALAFENAMIDE [Concomitant]
     Active Substance: BICTEGRAVIR\EMTRICITABINE\TENOFOVIR ALAFENAMIDE
     Route: 048

REACTIONS (1)
  - Septic shock [Fatal]
